FAERS Safety Report 8529748 (Version 2)
Quarter: 2012Q4

REPORT INFORMATION
  Report Type: 
  Country: US (occurrence: US)
  Receive Date: 20120425
  Receipt Date: 20121210
  Transmission Date: 20130627
  Serious: Yes (Other)
  Sender: FDA-Public Use
  Company Number: US-BIOGENIDEC-2012BI013525

PATIENT
  Age: 43 Year
  Sex: Female
  Weight: 53 kg

DRUGS (1)
  1. TYSABRI [Suspect]
     Indication: MULTIPLE SCLEROSIS
     Route: 042
     Dates: start: 20110328, end: 20120203

REACTIONS (4)
  - Acute hepatitis B [Recovered/Resolved]
  - Liver injury [Recovered/Resolved]
  - Iron deficiency anaemia [Recovered/Resolved]
  - Constipation [Not Recovered/Not Resolved]
